FAERS Safety Report 25627524 (Version 2)
Quarter: 2025Q3

REPORT INFORMATION
  Report Type: Spontaneous
  Country: US (occurrence: US)
  Receive Date: 20250731
  Receipt Date: 20250814
  Transmission Date: 20251021
  Serious: Yes (Death, Other)
  Sender: SANOFI AVENTIS
  Company Number: US-SA-2025SA223099

PATIENT
  Age: 22 Year
  Sex: Male
  Weight: 70.45 kg

DRUGS (26)
  1. DUPIXENT [Suspect]
     Active Substance: DUPILUMAB
     Indication: Eosinophilic oesophagitis
     Dosage: 300 MG, QW
     Route: 058
     Dates: start: 20250319, end: 2025
  2. REGLAN [Suspect]
     Active Substance: METOCLOPRAMIDE HYDROCHLORIDE
     Indication: Impaired gastric emptying
     Dates: start: 20250606
  3. KENALOG [Concomitant]
     Active Substance: TRIAMCINOLONE ACETONIDE
     Dosage: UNK UNK, BID
     Route: 061
  4. ELOCON [Concomitant]
     Active Substance: MOMETASONE FUROATE
     Dosage: UNK UNK, QD
     Route: 061
     Dates: start: 20220722
  5. COLYTE [MACROGOL 3350;POTASSIUM CHLORIDE;SODIUM BICARBONATE;SODIUM CHL [Concomitant]
     Route: 048
     Dates: start: 20250616
  6. OMEPRAZOLE [Concomitant]
     Active Substance: OMEPRAZOLE
     Indication: Gastrooesophageal reflux disease
  7. NEURONTIN [Concomitant]
     Active Substance: GABAPENTIN
     Route: 048
     Dates: start: 20240212
  8. PROTOPIC [Concomitant]
     Active Substance: TACROLIMUS
     Dosage: UNK UNK, BID (APPLY AS NEEDED TO GENITAL AREA)
     Route: 061
     Dates: start: 20210819
  9. PROTOPIC [Concomitant]
     Active Substance: TACROLIMUS
     Route: 061
     Dates: start: 20220722
  10. WESTCORT [Concomitant]
     Active Substance: HYDROCORTISONE VALERATE
     Dosage: APPLY TOPICALLY 2 TIMES DAILY
     Route: 061
     Dates: start: 20210205
  11. VITAMINS NOS [Concomitant]
     Active Substance: VITAMINS
     Dosage: 1 DF, QD
     Route: 048
  12. VYVANSE [Concomitant]
     Active Substance: LISDEXAMFETAMINE DIMESYLATE
     Route: 048
     Dates: start: 20250101, end: 20250715
  13. LUNESTA [Concomitant]
     Active Substance: ESZOPICLONE
     Dates: start: 20231011
  14. LOMOTIL [Concomitant]
     Active Substance: ATROPINE SULFATE\DIPHENOXYLATE HYDROCHLORIDE
     Dosage: 1 DF, QD
     Route: 048
     Dates: start: 20250613
  15. TEMOVATE [Concomitant]
     Active Substance: CLOBETASOL PROPIONATE
     Dosage: UNK UNK, BID
     Route: 061
     Dates: start: 20210819
  16. EPINEPHRINE [Concomitant]
     Active Substance: EPINEPHRINE
     Dates: start: 20200316
  17. PEPCID [Concomitant]
     Active Substance: FAMOTIDINE
     Dosage: 1 DF, BID
     Route: 048
     Dates: start: 20181126
  18. CREON [Concomitant]
     Active Substance: PANCRELIPASE AMYLASE\PANCRELIPASE LIPASE\PANCRELIPASE PROTEASE
     Dates: start: 20240111
  19. DEPADE [Concomitant]
     Dosage: 1 DF, QD
     Route: 048
     Dates: start: 20241217
  20. SKYRIZI [Concomitant]
     Active Substance: RISANKIZUMAB-RZAA
     Route: 058
     Dates: start: 20220802, end: 20220802
  21. SKYRIZI [Concomitant]
     Active Substance: RISANKIZUMAB-RZAA
     Route: 058
     Dates: start: 20220831, end: 20220831
  22. SKYRIZI [Concomitant]
     Active Substance: RISANKIZUMAB-RZAA
     Dosage: 150 MG, Q12W
     Route: 058
     Dates: start: 20221123
  23. VALIUM [Concomitant]
     Active Substance: DIAZEPAM
     Dates: start: 20240111
  24. WELCHOL [Concomitant]
     Active Substance: COLESEVELAM HYDROCHLORIDE
  25. VIBERZI [Concomitant]
     Active Substance: ELUXADOLINE
  26. ZOFRAN [Concomitant]
     Active Substance: ONDANSETRON HYDROCHLORIDE

REACTIONS (18)
  - Accident [Fatal]
  - Rectal haemorrhage [Unknown]
  - Impaired gastric emptying [Recovered/Resolved]
  - Nausea [Recovered/Resolved]
  - Vomiting [Recovered/Resolved]
  - Abdominal pain [Recovered/Resolved]
  - Choking [Unknown]
  - Abdominal pain upper [Recovered/Resolved]
  - Hepatic steatosis [Unknown]
  - Hepatic enzyme increased [Unknown]
  - Tremor [Unknown]
  - Dysphagia [Unknown]
  - Sensation of foreign body [Unknown]
  - Cough [Unknown]
  - Diarrhoea [Recovering/Resolving]
  - Frequent bowel movements [Recovering/Resolving]
  - Defaecation urgency [Recovering/Resolving]
  - Anal incontinence [Recovering/Resolving]

NARRATIVE: CASE EVENT DATE: 20250101
